FAERS Safety Report 4461984-9 (Version None)
Quarter: 2004Q3

REPORT INFORMATION
  Report Type: 
  Country: None (occurrence: None)
  Receive Date: 20040923
  Receipt Date: 20040908
  Transmission Date: 20050211
  Serious: Yes (Other)
  Sender: FDA-Public Use
  Company Number: 2004-0007470

PATIENT
  Sex: Male
  Weight: 79 kg

DRUGS (7)
  1. EMTRIVA [Suspect]
     Indication: HIV INFECTION
     Dosage: 200 MG, 1 IN 1 D, ORAL
     Route: 048
     Dates: start: 20031216
  2. TENOFOVIR DISOPROXIL FUMARATE      (TENOFOVIR DISOPROXIL FUMARATE) [Concomitant]
     Indication: HIV INFECTION
     Dosage: 300 MG, 1 IN 1 D, ORAL
     Route: 048
     Dates: start: 20031216
  3. VIRAMUNE [Suspect]
     Indication: HIV INFECTION
     Dosage: 200 MG, 2 IN 1 D
     Dates: start: 20031216
  4. METHADONE HCL [Concomitant]
  5. METOCLOPRAMIDE HYDROCHLORIDE [Concomitant]
  6. ZOLPIDEM TARTRATE [Concomitant]
  7. BROMAZEPAM (BROMAZEPAM) [Concomitant]

REACTIONS (6)
  - ALANINE AMINOTRANSFERASE INCREASED [None]
  - ASPARTATE AMINOTRANSFERASE INCREASED [None]
  - FEELING ABNORMAL [None]
  - GAMMA-GLUTAMYLTRANSFERASE INCREASED [None]
  - HEPATIC ENZYME INCREASED [None]
  - LIPASE INCREASED [None]
